FAERS Safety Report 7635076-1 (Version None)
Quarter: 2011Q3

REPORT INFORMATION
  Report Type: 
  Country: None (occurrence: None)
  Receive Date: 20110718
  Receipt Date: 20110701
  Transmission Date: 20111222
  Serious: Yes (Other)
  Sender: FDA-Public Use
  Company Number: AUR-APL-2011-00483

PATIENT
  Age: 68 Year
  Sex: Female
  Weight: 60 kg

DRUGS (5)
  1. ALENDRONATE SODIUM [Suspect]
     Indication: OSTEOPOROSIS PROPHYLAXIS
     Dosage: (70 MG), ORAL
     Route: 048
  2. RANITIDINE [Concomitant]
  3. AMLODIPINE [Concomitant]
  4. RAMIPRIL [Concomitant]
  5. STATIN (NYSTATIN) [Concomitant]

REACTIONS (2)
  - RENAL DISORDER [None]
  - HYPERTENSION [None]
